FAERS Safety Report 17571799 (Version 1)
Quarter: 2020Q1

REPORT INFORMATION
  Report Type: Spontaneous
  Country: US (occurrence: US)
  Receive Date: 20200320
  Receipt Date: 20200320
  Transmission Date: 20200409
  Serious: Yes (Death)
  Sender: FDA-Public Use
  Company Number: None

PATIENT
  Age: 48 Year
  Sex: Female

DRUGS (1)
  1. TRIKAFTA [Suspect]
     Active Substance: ELEXACAFTOR\IVACAFTOR\TEZACAFTOR
     Indication: CYSTIC FIBROSIS
     Dates: start: 20191026

REACTIONS (6)
  - Analgesic drug level above therapeutic [None]
  - Depression [None]
  - Seizure [None]
  - Paranoia [None]
  - Anxiety [None]
  - Cardiac arrest [None]

NARRATIVE: CASE EVENT DATE: 20200201
